FAERS Safety Report 8893046 (Version 1)
Quarter: 2012Q4

REPORT INFORMATION
  Report Type: Spontaneous
  Country: US (occurrence: None)
  Receive Date: 20121106
  Receipt Date: 20121106
  Transmission Date: 20130627
  Serious: Yes (Life-Threatening, Disabling, Other)
  Sender: FDA-Public Use
  Company Number: None

PATIENT
  Age: 55 Year
  Sex: Female
  Weight: 74.84 kg

DRUGS (1)
  1. BOTOX [Suspect]
     Indication: MIGRAINE
     Dosage: 100 units  33 shots at least  1 time
     Dates: start: 20111122, end: 20111122

REACTIONS (28)
  - Headache [None]
  - Musculoskeletal pain [None]
  - Asthenia [None]
  - Dizziness [None]
  - Vision blurred [None]
  - Photophobia [None]
  - Feeling abnormal [None]
  - Loss of consciousness [None]
  - Muscle spasms [None]
  - Eye movement disorder [None]
  - Facial spasm [None]
  - Dyspnoea [None]
  - Dysphagia [None]
  - Dry eye [None]
  - Dry skin [None]
  - Muscle atrophy [None]
  - Bone pain [None]
  - Hypoaesthesia [None]
  - Hypoaesthesia [None]
  - Gastric disorder [None]
  - Urinary tract disorder [None]
  - Antinuclear antibody positive [None]
  - Milk allergy [None]
  - Food allergy [None]
  - Food allergy [None]
  - Anxiety [None]
  - Overdose [None]
  - Hypersensitivity [None]
